FAERS Safety Report 19646788 (Version 1)
Quarter: 2021Q3

REPORT INFORMATION
  Report Type: Spontaneous
  Country: US (occurrence: US)
  Receive Date: 20210802
  Receipt Date: 20210802
  Transmission Date: 20211014
  Serious: Yes (Hospitalization)
  Sender: FDA-Public Use
  Company Number: None

PATIENT
  Sex: Female

DRUGS (6)
  1. VITAMIN B12 [Concomitant]
     Active Substance: CYANOCOBALAMIN
     Dates: start: 20210605
  2. FERROUS SULF [Concomitant]
     Active Substance: FERROUS SULFATE
     Dates: start: 20210605
  3. FOLIC ACID. [Concomitant]
     Active Substance: FOLIC ACID
     Dates: start: 20210126
  4. LEVOTHYROXIN [Concomitant]
     Active Substance: LEVOTHYROXINE
     Dates: start: 20210726
  5. FORTEO [Suspect]
     Active Substance: TERIPARATIDE
     Indication: OSTEOPOROSIS
     Route: 058
     Dates: start: 20200121
  6. XARELTO [Concomitant]
     Active Substance: RIVAROXABAN
     Dates: start: 20210422

REACTIONS (1)
  - Hip arthroplasty [None]
